FAERS Safety Report 14194181 (Version 1)
Quarter: 2017Q4

REPORT INFORMATION
  Report Type: Spontaneous
  Country: US (occurrence: None)
  Receive Date: 20171115
  Receipt Date: 20171115
  Transmission Date: 20180321
  Serious: No
  Sender: FDA-Public Use
  Company Number: None

PATIENT
  Age: 68 Year
  Sex: Female

DRUGS (2)
  1. LUCENTIS [Suspect]
     Active Substance: RANIBIZUMAB
     Indication: HEPATITIS C
     Dosage: ROUTE - INTRAVITREALLY
     Dates: start: 20170923, end: 20171005
  2. LUCENTIS [Suspect]
     Active Substance: RANIBIZUMAB
     Indication: HYPERLIPIDAEMIA
     Dosage: ROUTE - INTRAVITREALLY
     Dates: start: 20170923, end: 20171005

REACTIONS (2)
  - Multiple allergies [None]
  - Eye pruritus [None]

NARRATIVE: CASE EVENT DATE: 20171115
